FAERS Safety Report 13347554 (Version 1)
Quarter: 2017Q1

REPORT INFORMATION
  Report Type: Spontaneous
  Country: JP (occurrence: JP)
  Receive Date: 20170317
  Receipt Date: 20170317
  Transmission Date: 20170428
  Serious: Yes (Hospitalization, Other)
  Sender: FDA-Public Use
  Company Number: JP-MALLINCKRODT-T201700619

PATIENT
  Age: 60 Year
  Sex: Male
  Weight: 64 kg

DRUGS (26)
  1. METHADONE [Suspect]
     Active Substance: METHADONE HYDROCHLORIDE
     Dosage: 25 MG, (DAILY DOSE 75 MG)
     Route: 048
     Dates: start: 20151026, end: 20151101
  2. METHADONE [Suspect]
     Active Substance: METHADONE HYDROCHLORIDE
     Dosage: 10 MG, (DAILY DOSE 30 MG)
     Route: 048
     Dates: start: 20151125, end: 20151215
  3. LOXOPROFEN [Concomitant]
     Active Substance: LOXOPROFEN
     Indication: ANALGESIC THERAPY
     Dosage: 180 MG, UNK
     Route: 048
  4. OXYCONTIN [Concomitant]
     Active Substance: OXYCODONE HYDROCHLORIDE
     Dosage: 600 MG, UNK
     Route: 048
     Dates: start: 20151001, end: 20151008
  5. METHADONE [Suspect]
     Active Substance: METHADONE HYDROCHLORIDE
     Dosage: 20 MG, (DAILY DOSE 60 MG)
     Route: 048
     Dates: start: 20151020, end: 20151025
  6. OXINORM [Concomitant]
     Active Substance: OXYCODONE HYDROCHLORIDE
     Indication: ANALGESIC THERAPY
     Dosage: 40 MG, PRN
     Route: 048
     Dates: start: 20150930
  7. MAGLAX [Concomitant]
     Active Substance: MAGNESIUM OXIDE
     Dosage: 1980 MG, UNK
     Route: 048
  8. OXYCONTIN [Concomitant]
     Active Substance: OXYCODONE HYDROCHLORIDE
     Dosage: 180 MG, UNK
     Route: 048
     Dates: start: 20151016, end: 20151021
  9. XYLOCAINE [Concomitant]
     Active Substance: LIDOCAINE HYDROCHLORIDE
     Dosage: 1200 MG, UNK
     Route: 008
     Dates: start: 20151223
  10. PARIET [Concomitant]
     Active Substance: RABEPRAZOLE SODIUM
     Dosage: 10 MG, UNK
     Route: 048
  11. ALPRAZOLAM. [Concomitant]
     Active Substance: ALPRAZOLAM
     Dosage: 0.4 MG, UNK
     Route: 048
  12. PANTETHINE [Concomitant]
     Active Substance: PANTETHINE
     Dosage: 600 MG, UNK
     Route: 048
  13. OXYCONTIN [Concomitant]
     Active Substance: OXYCODONE HYDROCHLORIDE
     Dosage: 60 MG, UNK
     Route: 048
     Dates: start: 20151026, end: 20151101
  14. METHADONE [Suspect]
     Active Substance: METHADONE HYDROCHLORIDE
     Indication: CANCER PAIN
     Dosage: 10 MG, (DAILY DOSE 30 MG)
     Route: 048
     Dates: start: 20151001, end: 20151015
  15. OXYCONTIN [Concomitant]
     Active Substance: OXYCODONE HYDROCHLORIDE
     Dosage: 120 MG, UNK
     Route: 048
     Dates: start: 20151022, end: 20151025
  16. OXYCONTIN [Concomitant]
     Active Substance: OXYCODONE HYDROCHLORIDE
     Dosage: 120 MG, UNK
     Route: 048
     Dates: start: 20151224
  17. ANAPEINE [Concomitant]
     Active Substance: ROPIVACAINE HYDROCHLORIDE
     Dosage: 2 MG, PRN
     Route: 008
     Dates: start: 20151129
  18. METHADONE [Suspect]
     Active Substance: METHADONE HYDROCHLORIDE
     Dosage: 30 MG, (DAILY DOSE 90 MG)
     Route: 048
     Dates: start: 20151102, end: 20151112
  19. LYRICA [Concomitant]
     Active Substance: PREGABALIN
     Indication: ANALGESIC THERAPY
     Dosage: 450 MG, UNK
     Route: 048
  20. ANAPEINE [Concomitant]
     Active Substance: ROPIVACAINE HYDROCHLORIDE
     Dosage: 144 MG, UNK
     Route: 008
     Dates: start: 20151113, end: 20151223
  21. METHADONE [Suspect]
     Active Substance: METHADONE HYDROCHLORIDE
     Dosage: 15 MG, (DAILY DOSE 45 MG)
     Route: 048
     Dates: start: 20151016, end: 20151019
  22. METHADONE [Suspect]
     Active Substance: METHADONE HYDROCHLORIDE
     Dosage: 10 MG, (DAILY DOSE 20 MG)
     Route: 048
     Dates: start: 20151216, end: 20151220
  23. OXYCONTIN [Concomitant]
     Active Substance: OXYCODONE HYDROCHLORIDE
     Indication: ANALGESIC THERAPY
     Dosage: 660 MG, UNK
     Route: 048
     Dates: end: 20150930
  24. OXYCONTIN [Concomitant]
     Active Substance: OXYCODONE HYDROCHLORIDE
     Dosage: 240 MG, UNK
     Route: 048
     Dates: start: 20151009, end: 20151015
  25. METHADONE [Suspect]
     Active Substance: METHADONE HYDROCHLORIDE
     Dosage: 20 MG, (DAILY DOSE 60 MG)
     Route: 048
     Dates: start: 20151113, end: 20151124
  26. MORPHINE HYDROCHLORIDE [Concomitant]
     Active Substance: MORPHINE HYDROCHLORIDE
     Dosage: 6.72 MG, UNK
     Route: 008
     Dates: start: 20151216, end: 20151223

REACTIONS (3)
  - Bacteraemia [Recovered/Resolved]
  - Pneumonia [Recovered/Resolved]
  - Hypercalcaemia [Recovering/Resolving]

NARRATIVE: CASE EVENT DATE: 20151003
